FAERS Safety Report 22141488 (Version 1)
Quarter: 2023Q1

REPORT INFORMATION
  Report Type: Spontaneous
  Country: US (occurrence: None)
  Receive Date: 20230325
  Receipt Date: 20230325
  Transmission Date: 20230417
  Serious: Yes (Disabling)
  Sender: FDA-Public Use
  Company Number: None

PATIENT
  Age: 66 Year
  Sex: Female
  Weight: 66.6 kg

DRUGS (7)
  1. TERBINAFINE [Suspect]
     Active Substance: TERBINAFINE
     Indication: Paronychia
     Dates: start: 20151028, end: 20151128
  2. CLONAZEPAM [Concomitant]
     Active Substance: CLONAZEPAM
  3. FLONASE [Concomitant]
     Active Substance: FLUTICASONE PROPIONATE
  4. DEVICE [Concomitant]
     Active Substance: DEVICE
  5. OMEGA 3 [Concomitant]
     Active Substance: CAPSAICIN
  6. MAGNESIUM [Concomitant]
     Active Substance: MAGNESIUM
  7. VITAMIN D NOS [Concomitant]
     Active Substance: VITAMIN D NOS

REACTIONS (10)
  - Agitation [None]
  - Fear [None]
  - Hyperaesthesia [None]
  - Restlessness [None]
  - Initial insomnia [None]
  - Generalised anxiety disorder [None]
  - Dyspnoea [None]
  - Drug resistance [None]
  - Food allergy [None]
  - Drug ineffective [None]

NARRATIVE: CASE EVENT DATE: 20151128
